FAERS Safety Report 10268727 (Version 2)
Quarter: 2014Q3

REPORT INFORMATION
  Report Type: Spontaneous
  Country: GB (occurrence: GB)
  Receive Date: 20140630
  Receipt Date: 20140716
  Transmission Date: 20150326
  Serious: Yes (Hospitalization, Other)
  Sender: FDA-Public Use
  Company Number: GB-TEVA-491006ISR

PATIENT
  Age: 58 Year
  Sex: Female

DRUGS (5)
  1. ACTAVIS GROUP PTC IRBESARTAN [Suspect]
     Active Substance: IRBESARTAN
     Indication: HYPERTENSION
     Route: 065
  2. RAMIPRIL. [Suspect]
     Active Substance: RAMIPRIL
     Indication: HYPERTENSION
     Route: 048
  3. VALSARTAN. [Suspect]
     Active Substance: VALSARTAN
     Indication: HYPERTENSION
     Route: 065
     Dates: end: 20140207
  4. TEVA UK BISOPROLOL [Concomitant]
     Indication: PRODUCT USED FOR UNKNOWN INDICATION
     Dosage: 2.5 MILLIGRAM DAILY;
     Route: 065
  5. SANDOZ LTD RAMIPRIL [Concomitant]
     Indication: HYPERTENSION
     Route: 065

REACTIONS (11)
  - Gastrointestinal oedema [Unknown]
  - Ear discomfort [Unknown]
  - Joint stiffness [Unknown]
  - Abdominal distension [Unknown]
  - Mouth swelling [Unknown]
  - Troponin increased [Unknown]
  - Nasal discomfort [Unknown]
  - Myocardial infarction [Unknown]
  - Rectal haemorrhage [Unknown]
  - Swollen tongue [Unknown]
  - Nasal dryness [Unknown]
